FAERS Safety Report 4762412-6 (Version None)
Quarter: 2005Q3

REPORT INFORMATION
  Report Type: 
  Country: None (occurrence: None)
  Receive Date: 20050901
  Receipt Date: 20050531
  Transmission Date: 20060218
  Serious: No
  Sender: FDA-Public Use
  Company Number: 200511084BWH

PATIENT
  Age: 56 Year
  Sex: Male

DRUGS (3)
  1. LEVITRA [Suspect]
     Indication: ERECTILE DYSFUNCTION
     Dosage: 10 MG, PRN, ORAL
     Route: 048
     Dates: start: 20050527
  2. NEXIUM [Concomitant]
  3. FLONASE [Concomitant]

REACTIONS (2)
  - DIZZINESS [None]
  - HEADACHE [None]
